FAERS Safety Report 9185765 (Version 3)
Quarter: 2013Q2

REPORT INFORMATION
  Report Type: Spontaneous
  Country: IT (occurrence: IT)
  Receive Date: 20130325
  Receipt Date: 20130412
  Transmission Date: 20140414
  Serious: Yes (Hospitalization)
  Sender: FDA-Public Use
  Company Number: IT-ASTRAZENECA-2013SE17935

PATIENT
  Age: 15315 Day
  Sex: Female
  Weight: 36 kg

DRUGS (6)
  1. SEROQUEL [Suspect]
     Indication: BIPOLAR DISORDER
     Route: 048
     Dates: start: 20130201, end: 20130228
  2. SEROQUEL [Suspect]
     Indication: BIPOLAR DISORDER
     Route: 048
     Dates: start: 20130214, end: 20130228
  3. ZOLOFT [Concomitant]
     Indication: DEPRESSION
     Route: 048
     Dates: start: 20120601, end: 20130228
  4. REMERON [Concomitant]
     Route: 048
  5. EN [Concomitant]
     Indication: ANXIETY
  6. RIVOTRIL [Concomitant]
     Dosage: 2.5 MG / ML, 45 GGT
     Route: 048

REACTIONS (3)
  - Electrocardiogram QT prolonged [Recovered/Resolved]
  - Electrolyte imbalance [Unknown]
  - Intentional drug misuse [Unknown]
